FAERS Safety Report 6883264-4 (Version None)
Quarter: 2010Q3

REPORT INFORMATION
  Report Type: 
  Country: None (occurrence: None)
  Receive Date: 20100727
  Receipt Date: 20070712
  Transmission Date: 20110219
  Serious: Yes (Hospitalization, Other)
  Sender: FDA-Public Use
  Company Number: US-PFIZER INC-2007031355

PATIENT
  Sex: Male

DRUGS (2)
  1. CELEBREX [Suspect]
     Route: 048
     Dates: start: 20030801
  2. BEXTRA [Suspect]
     Route: 048
     Dates: start: 20021001, end: 20030901

REACTIONS (3)
  - DEPRESSION [None]
  - GENERALISED ANXIETY DISORDER [None]
  - MYOCARDIAL INFARCTION [None]
